FAERS Safety Report 8791339 (Version 1)
Quarter: 2012Q4

REPORT INFORMATION
  Report Type: Spontaneous
  Country: US (occurrence: None)
  Receive Date: 20120914
  Receipt Date: 20120914
  Transmission Date: 20130627
  Serious: Yes (Life-Threatening, Hospitalization, Disabling)
  Sender: FDA-Public Use
  Company Number: None

PATIENT
  Age: 80 Year
  Sex: Female
  Weight: 47.63 kg

DRUGS (1)
  1. PROLIA [Suspect]
     Indication: OSTEOPOROSIS
     Route: 058
     Dates: start: 20111115

REACTIONS (37)
  - Urinary tract infection [None]
  - Electrolyte imbalance [None]
  - Pneumonia [None]
  - Dysphagia [None]
  - Foreign body [None]
  - Gastrooesophageal reflux disease [None]
  - Constipation [None]
  - Decreased appetite [None]
  - Odynophagia [None]
  - Nausea [None]
  - Vomiting [None]
  - Dehydration [None]
  - Hypertension [None]
  - Cystitis [None]
  - Immune system disorder [None]
  - Abasia [None]
  - Joint range of motion decreased [None]
  - Fungal infection [None]
  - Mental status changes [None]
  - Disorientation [None]
  - Confusional state [None]
  - Hallucination [None]
  - Diplopia [None]
  - White blood cell count increased [None]
  - Oesophageal disorder [None]
  - Candidiasis [None]
  - Headache [None]
  - Muscular weakness [None]
  - Arthralgia [None]
  - Retching [None]
  - Blood potassium decreased [None]
  - Pain in extremity [None]
  - Urine abnormality [None]
  - Paraesthesia [None]
  - Back pain [None]
  - Fluid intake reduced [None]
  - Muscular weakness [None]
